FAERS Safety Report 12942145 (Version 1)
Quarter: 2016Q4

REPORT INFORMATION
  Report Type: Spontaneous
  Country: US (occurrence: US)
  Receive Date: 20161114
  Receipt Date: 20161114
  Transmission Date: 20170207
  Serious: Yes (Hospitalization, Other)
  Sender: FDA-Public Use
  Company Number: US-ASTRAZENECA-2016SF17635

PATIENT
  Age: 660 Month
  Sex: Male
  Weight: 91.2 kg

DRUGS (9)
  1. IV ANTIBIOTICS [Concomitant]
     Active Substance: UNSPECIFIED INGREDIENT
     Route: 042
  2. VITAMIN D [Concomitant]
     Active Substance: CHOLECALCIFEROL
     Indication: SUPPLEMENTATION THERAPY
     Dosage: DAILY
     Route: 048
  3. FLEXERIL [Concomitant]
     Active Substance: CYCLOBENZAPRINE HYDROCHLORIDE
     Route: 048
  4. NEXIUM [Suspect]
     Active Substance: ESOMEPRAZOLE MAGNESIUM
     Indication: GASTROOESOPHAGEAL REFLUX DISEASE
     Route: 048
     Dates: start: 2008
  5. NEUCENTA [Concomitant]
     Indication: PAIN
     Route: 048
     Dates: start: 201301
  6. TIZANIDINE. [Concomitant]
     Active Substance: TIZANIDINE
     Indication: PAIN
     Dosage: 4.0MG UNKNOWN
     Route: 048
     Dates: start: 20160131
  7. CLINDAMYCIN. [Concomitant]
     Active Substance: CLINDAMYCIN
     Indication: INFECTION
     Route: 048
     Dates: start: 20161029
  8. OVER 55 SILVER MULTIVITAMIN [Concomitant]
     Indication: SUPPLEMENTATION THERAPY
     Dosage: DAILY
     Route: 048
     Dates: start: 2015
  9. PRILOSEC [Suspect]
     Active Substance: OMEPRAZOLE MAGNESIUM
     Indication: GASTROOESOPHAGEAL REFLUX DISEASE
     Route: 048

REACTIONS (17)
  - Pneumothorax [Unknown]
  - Gastrointestinal tract irritation [Unknown]
  - Off label use [Unknown]
  - Sternal fracture [Unknown]
  - Device related sepsis [Unknown]
  - Ulcer [Unknown]
  - Barrett^s oesophagus [Unknown]
  - Magnesium deficiency [Unknown]
  - Rib fracture [Unknown]
  - Swelling [Unknown]
  - Vitamin B12 deficiency [Unknown]
  - Joint dislocation [Unknown]
  - Device related infection [Unknown]
  - Intervertebral disc degeneration [Unknown]
  - Intentional product misuse [Unknown]
  - Road traffic accident [Unknown]
  - Infection reactivation [Unknown]

NARRATIVE: CASE EVENT DATE: 201609
